FAERS Safety Report 6615133-9 (Version None)
Quarter: 2010Q1

REPORT INFORMATION
  Report Type: 
  Country: None (occurrence: None)
  Receive Date: 20100305
  Receipt Date: 20100222
  Transmission Date: 20100710
  Serious: Yes (Hospitalization)
  Sender: FDA-Public Use
  Company Number: PT-BRISTOL-MYERS SQUIBB COMPANY-14998462

PATIENT
  Age: 67 Year
  Sex: Female

DRUGS (8)
  1. RISIDON [Suspect]
     Indication: TYPE 2 DIABETES MELLITUS
     Dosage: RISIDON 1000MG
     Route: 048
     Dates: end: 20100123
  2. METFORMIN HCL [Suspect]
     Indication: TYPE 2 DIABETES MELLITUS
     Dosage: METFORMIN HCL 1000MG FILM-COATED TABS
     Route: 048
     Dates: end: 20100123
  3. VILDAGLIPTIN [Suspect]
     Indication: TYPE 2 DIABETES MELLITUS
     Dosage: VILDAGLIPTIN 50MG, FILM-COATED TABS
     Route: 048
     Dates: end: 20100123
  4. AMLODIPINE BESYLATE [Concomitant]
     Dosage: AMLODIPINE BESYLATE 160
  5. VALSARTAN [Concomitant]
  6. FLUOXETINE [Concomitant]
  7. ACETYLSALICYLIC ACID [Concomitant]
  8. ESCITALOPRAM OXALATE [Concomitant]

REACTIONS (2)
  - LACTIC ACIDOSIS [None]
  - RENAL FAILURE CHRONIC [None]
